FAERS Safety Report 5176122-7 (Version None)
Quarter: 2006Q4

REPORT INFORMATION
  Report Type: 
  Country: None (occurrence: None)
  Receive Date: 20061215
  Receipt Date: 20060628
  Transmission Date: 20070319
  Serious: No
  Sender: FDA-Public Use
  Company Number: US-AMGEN-KDL184669

PATIENT
  Sex: Female

DRUGS (1)
  1. ENBREL [Suspect]
     Indication: PSORIATIC ARTHROPATHY
     Route: 058
     Dates: start: 20060515

REACTIONS (7)
  - ARTHROPOD STING [None]
  - ERYTHEMA [None]
  - FEELING HOT [None]
  - PAIN IN EXTREMITY [None]
  - PRURITUS [None]
  - RHINORRHOEA [None]
  - SWELLING [None]
